FAERS Safety Report 20797047 (Version 2)
Quarter: 2022Q2

REPORT INFORMATION
  Report Type: Spontaneous
  Country: US (occurrence: US)
  Receive Date: 20220506
  Receipt Date: 20220627
  Transmission Date: 20220721
  Serious: No
  Sender: FDA-Public Use
  Company Number: None

PATIENT
  Age: 69 Year
  Sex: Male

DRUGS (2)
  1. REVLIMID [Suspect]
     Active Substance: LENALIDOMIDE
     Indication: Pathological fracture
     Route: 048
  2. REVLIMID [Suspect]
     Active Substance: LENALIDOMIDE
     Route: 048
     Dates: start: 20210728

REACTIONS (4)
  - Intentional product use issue [Unknown]
  - Product physical issue [Unknown]
  - Decreased activity [Unknown]
  - Illness [Unknown]

NARRATIVE: CASE EVENT DATE: 20220601
